FAERS Safety Report 13610465 (Version 1)
Quarter: 2017Q2

REPORT INFORMATION
  Report Type: Report from Study
  Country: CA (occurrence: CA)
  Receive Date: 20170605
  Receipt Date: 20170605
  Transmission Date: 20170830
  Serious: Yes (Other)
  Sender: FDA-Public Use
  Company Number: CA-GLAXOSMITHKLINE-CA2017GSK084385

PATIENT
  Sex: Female

DRUGS (1)
  1. SALBUTAMOL SULPHATE [Suspect]
     Active Substance: ALBUTEROL SULFATE
     Indication: PRODUCT USED FOR UNKNOWN INDICATION
     Dosage: UNK
     Dates: start: 2002

REACTIONS (4)
  - Type 2 diabetes mellitus [Unknown]
  - Hypertension [Unknown]
  - Colitis ulcerative [Unknown]
  - Arthritis [Unknown]

NARRATIVE: CASE EVENT DATE: 2007
